FAERS Safety Report 8590860 (Version 3)
Quarter: 2015Q4

REPORT INFORMATION
  Report Type: Spontaneous
  Country: US (occurrence: US)
  Receive Date: 20120601
  Receipt Date: 20151106
  Transmission Date: 20160305
  Serious: Yes (Death, Other)
  Sender: FDA-Public Use
  Company Number: US-BAYER-2012-052612

PATIENT
  Age: 40 Year
  Sex: Female
  Weight: 73.16 kg

DRUGS (3)
  1. YAZ [Suspect]
     Active Substance: DROSPIRENONE\ETHINYL ESTRADIOL
     Indication: PREMENSTRUAL SYNDROME
     Dosage: UNK
     Dates: start: 200710, end: 20100706
  2. SIMVASTATIN. [Concomitant]
     Active Substance: SIMVASTATIN
     Indication: BLOOD CHOLESTEROL INCREASED
     Dosage: 40 MG, UNK
     Route: 048
     Dates: start: 200904, end: 201005
  3. YAZ [Suspect]
     Active Substance: DROSPIRENONE\ETHINYL ESTRADIOL
     Indication: MENSTRUATION IRREGULAR

REACTIONS (8)
  - Myocardial infarction [Fatal]
  - Pulmonary embolism [Fatal]
  - Injury [Fatal]
  - Pain [Fatal]
  - Anxiety [None]
  - Anhedonia [None]
  - General physical health deterioration [Fatal]
  - Emotional distress [None]

NARRATIVE: CASE EVENT DATE: 20100706
